FAERS Safety Report 7919993-0 (Version None)
Quarter: 2011Q4

REPORT INFORMATION
  Report Type: 
  Country: None (occurrence: None)
  Receive Date: 20111115
  Receipt Date: 20111107
  Transmission Date: 20120403
  Serious: Yes (Hospitalization)
  Sender: FDA-Public Use
  Company Number: DSA_44551_2010

PATIENT
  Weight: 147.419 kg

DRUGS (23)
  1. XENAZINE [Suspect]
     Indication: DYSKINESIA
     Dosage: SEE IMAGE, 1 DAY UNTIL NOT CONTINUING
     Route: 048
     Dates: start: 20110516
  2. XENAZINE [Suspect]
     Indication: TARDIVE DYSKINESIA
     Dosage: SEE IMAGE, 1 DAY UNTIL NOT CONTINUING
     Route: 048
     Dates: start: 20110516
  3. XENAZINE [Suspect]
     Indication: DYSKINESIA
     Dosage: SEE IMAGE, 1 DAY UNTIL NOT CONTINUING
     Route: 048
     Dates: start: 20101103, end: 20100101
  4. XENAZINE [Suspect]
     Indication: TARDIVE DYSKINESIA
     Dosage: SEE IMAGE, 1 DAY UNTIL NOT CONTINUING
     Route: 048
     Dates: start: 20101103, end: 20100101
  5. XENAZINE [Suspect]
     Indication: DYSKINESIA
     Dosage: SEE IMAGE, 1 DAY UNTIL NOT CONTINUING
     Route: 048
     Dates: start: 20100101
  6. XENAZINE [Suspect]
     Indication: TARDIVE DYSKINESIA
     Dosage: SEE IMAGE, 1 DAY UNTIL NOT CONTINUING
     Route: 048
     Dates: start: 20100101
  7. XENAZINE [Suspect]
     Indication: DYSKINESIA
     Dosage: SEE IMAGE, 1 DAY UNTIL NOT CONTINUING
     Route: 048
     Dates: start: 20101101
  8. XENAZINE [Suspect]
     Indication: TARDIVE DYSKINESIA
     Dosage: SEE IMAGE, 1 DAY UNTIL NOT CONTINUING
     Route: 048
     Dates: start: 20101101
  9. HUMULIN R [Concomitant]
  10. SYNTHROID [Concomitant]
  11. VITAMIN B COMPLEX CAP [Concomitant]
  12. XENAZINE [Suspect]
  13. NEXIUM /01479303/ [Concomitant]
  14. HYZAAR [Concomitant]
  15. QUESTRAN [Concomitant]
  16. ROZEREM [Concomitant]
  17. TRAMADOL HCL [Concomitant]
  18. VITAMIN D [Concomitant]
  19. AMBIEN [Concomitant]
  20. METFORMIN HCL [Concomitant]
  21. IMODIUM [Concomitant]
  22. ASACOL [Concomitant]
  23. LOSARTAN POTASSIUM [Concomitant]

REACTIONS (16)
  - ERUCTATION [None]
  - MUSCULAR WEAKNESS [None]
  - DYSSTASIA [None]
  - DIZZINESS [None]
  - DYSPNOEA [None]
  - HYPERHIDROSIS [None]
  - VOMITING [None]
  - ELECTROCARDIOGRAM QT PROLONGED [None]
  - NAUSEA [None]
  - CHILLS [None]
  - DIARRHOEA [None]
  - MUSCULOSKELETAL STIFFNESS [None]
  - MOVEMENT DISORDER [None]
  - SKIN ODOUR ABNORMAL [None]
  - TREMOR [None]
  - CONVULSION [None]
